FAERS Safety Report 6052638-6 (Version None)
Quarter: 2009Q1

REPORT INFORMATION
  Report Type: 
  Country: None (occurrence: None)
  Receive Date: 20090127
  Receipt Date: 20090121
  Transmission Date: 20090719
  Serious: Yes (Other)
  Sender: FDA-Public Use
  Company Number: US-JNJFOC-20080305472

PATIENT
  Sex: Female
  Weight: 82.56 kg

DRUGS (1)
  1. FENTANYL TRANSDERMAL SYSTEM [Suspect]
     Indication: PAIN
     Route: 062

REACTIONS (17)
  - ARTHRITIS [None]
  - BLOOD ALBUMIN DECREASED [None]
  - CARDIAC FAILURE CHRONIC [None]
  - CELLULITIS [None]
  - DYSPHAGIA [None]
  - EXCORIATION [None]
  - FOAMING AT MOUTH [None]
  - OEDEMA [None]
  - OEDEMA PERIPHERAL [None]
  - PHARYNGEAL OEDEMA [None]
  - PRODUCT QUALITY ISSUE [None]
  - PRURITUS [None]
  - SECRETION DISCHARGE [None]
  - SKIN DISCOLOURATION [None]
  - THROAT IRRITATION [None]
  - THROAT TIGHTNESS [None]
  - WEIGHT INCREASED [None]
